FAERS Safety Report 8401819-2 (Version None)
Quarter: 2012Q2

REPORT INFORMATION
  Report Type: 
  Country: None (occurrence: None)
  Receive Date: 20120601
  Receipt Date: 20120524
  Transmission Date: 20120825
  Serious: Yes (Hospitalization, Other)
  Sender: FDA-Public Use
  Company Number: US-JNJFOC-20111209826

PATIENT
  Age: 78 Year
  Sex: Female

DRUGS (4)
  1. XARELTO [Suspect]
     Indication: ATRIAL FIBRILLATION
     Route: 048
     Dates: end: 20111219
  2. CLOPIDOGREL [Suspect]
     Indication: ILL-DEFINED DISORDER
  3. ASPIRIN [Suspect]
     Indication: ILL-DEFINED DISORDER
  4. XARELTO [Suspect]
     Route: 048
     Dates: end: 20120101

REACTIONS (3)
  - PHARYNGEAL HAEMORRHAGE [None]
  - CEREBROVASCULAR ACCIDENT [None]
  - HAEMORRHAGE [None]
